FAERS Safety Report 4668643-8 (Version None)
Quarter: 2005Q2

REPORT INFORMATION
  Report Type: 
  Country: None (occurrence: None)
  Receive Date: 20050523
  Receipt Date: 20041105
  Transmission Date: 20051028
  Serious: Yes (Other)
  Sender: FDA-Public Use
  Company Number: PHEH2004US12054

PATIENT
  Age: 57 Year
  Sex: Female
  Weight: 63 kg

DRUGS (7)
  1. ZOLEDRONATE [Suspect]
     Indication: MULTIPLE MYELOMA
     Dosage: 4 MG, QMO
     Route: 042
     Dates: start: 20020201, end: 20040927
  2. ESTROTEST [Concomitant]
  3. LEVOXYL [Concomitant]
  4. PERCOCET [Concomitant]
  5. MOTRIN [Concomitant]
  6. LORAZEPAM [Concomitant]
  7. FIORINAL [Concomitant]

REACTIONS (4)
  - INCISIONAL DRAINAGE [None]
  - OSTEONECROSIS [None]
  - PAIN IN JAW [None]
  - WOUND DEBRIDEMENT [None]
